FAERS Safety Report 19194547 (Version 1)
Quarter: 2021Q2

REPORT INFORMATION
  Report Type: Spontaneous
  Country: US (occurrence: US)
  Receive Date: 20210429
  Receipt Date: 20210429
  Transmission Date: 20210717
  Serious: Yes (Hospitalization)
  Sender: FDA-Public Use
  Company Number: None

PATIENT
  Age: 56 Year

DRUGS (1)
  1. ADEMPAS [Suspect]
     Active Substance: RIOCIGUAT
     Indication: PULMONARY HYPERTENSION
     Route: 048
     Dates: start: 20140401

REACTIONS (6)
  - Anaemia [None]
  - Dyspnoea [None]
  - Epistaxis [None]
  - Hypoxia [None]
  - Oxygen saturation increased [None]
  - Chronic respiratory failure [None]

NARRATIVE: CASE EVENT DATE: 20210426
